FAERS Safety Report 8005572-6 (Version None)
Quarter: 2011Q4

REPORT INFORMATION
  Report Type: 
  Country: None (occurrence: None)
  Receive Date: 20111223
  Receipt Date: 20111220
  Transmission Date: 20120403
  Serious: Yes (Hospitalization)
  Sender: FDA-Public Use
  Company Number: FR-PFIZER INC-2011308261

PATIENT
  Age: 45 Year
  Sex: Male

DRUGS (19)
  1. DIAMOX SRC [Concomitant]
     Dosage: UNK
     Dates: start: 20111126, end: 20111129
  2. VANCOMYCIN [Concomitant]
     Dosage: UNK
     Dates: start: 20111123, end: 20111125
  3. MIDAZOLAM HCL [Concomitant]
     Dosage: UNK
     Dates: start: 20111119
  4. LOVENOX [Concomitant]
     Dosage: UNK
     Dates: start: 20111119
  5. LASIX [Concomitant]
     Dosage: UNK
     Dates: start: 20111202, end: 20111202
  6. LASIX [Concomitant]
     Dosage: UNK
     Dates: start: 20111130, end: 20111130
  7. LASIX [Concomitant]
     Dosage: UNK
     Dates: start: 20111203, end: 20111203
  8. TICARCILLIN [Concomitant]
     Dosage: UNK
     Dates: start: 20111121, end: 20111122
  9. PIPERACILLIN AND TAZOBACTAM [Suspect]
     Dosage: UNK
     Route: 042
     Dates: start: 20111116, end: 20111125
  10. TRACRIUM [Concomitant]
     Dosage: UNK
     Dates: start: 20111128, end: 20111204
  11. HUMALOG [Concomitant]
     Dosage: UNK
     Dates: start: 20111122
  12. DIAMOX SRC [Concomitant]
     Dosage: UNK
     Dates: start: 20111123, end: 20111123
  13. GENTAMICIN [Concomitant]
     Dosage: UNK
     Dates: start: 20111123
  14. MEROPENEM [Suspect]
     Dosage: UNK
     Dates: start: 20111130
  15. SUFENTA PRESERVATIVE FREE [Concomitant]
     Dosage: UNK
     Dates: start: 20111119
  16. TRACRIUM [Concomitant]
     Dosage: UNK
     Dates: start: 20111119, end: 20111124
  17. DIAMOX SRC [Concomitant]
     Dosage: UNK
     Dates: start: 20111121, end: 20111121
  18. DIAMOX SRC [Concomitant]
     Dosage: UNK
     Dates: start: 20111203, end: 20111205
  19. AMIKACIN [Concomitant]
     Dosage: UNK
     Dates: start: 20111130

REACTIONS (2)
  - CYTOLYTIC HEPATITIS [None]
  - CHOLESTASIS [None]
